FAERS Safety Report 7714458-3 (Version None)
Quarter: 2011Q3

REPORT INFORMATION
  Report Type: 
  Country: None (occurrence: None)
  Receive Date: 20110829
  Receipt Date: 20110818
  Transmission Date: 20111222
  Serious: Yes (Other)
  Sender: FDA-Public Use
  Company Number: BR-BAYER-2011-074662

PATIENT
  Age: 42 Year
  Sex: Female
  Weight: 75 kg

DRUGS (5)
  1. YAZ (24) [Suspect]
     Indication: CONTRACEPTION
     Dosage: 1 DF, QD
     Route: 048
     Dates: start: 20080101, end: 20110724
  2. YASMIN [Suspect]
     Indication: CONTRACEPTION
     Dosage: UNK
     Route: 048
  3. YAZ (24) [Suspect]
     Indication: FLUID RETENTION
  4. YASMIN [Suspect]
     Indication: SKIN DISORDER
  5. YASMIN [Suspect]
     Indication: FLUID RETENTION

REACTIONS (4)
  - HAEMORRHOIDAL HAEMORRHAGE [None]
  - RASH [None]
  - WEIGHT INCREASED [None]
  - RECTAL HAEMORRHAGE [None]
